FAERS Safety Report 13393176 (Version 3)
Quarter: 2017Q4

REPORT INFORMATION
  Report Type: Report from Study
  Country: US (occurrence: US)
  Receive Date: 20170331
  Receipt Date: 20171011
  Transmission Date: 20180320
  Serious: Yes (Hospitalization)
  Sender: FDA-Public Use
  Company Number: US-TAKEDA-2017MPI002552

PATIENT
  Sex: Male

DRUGS (2)
  1. VELCADE [Suspect]
     Active Substance: BORTEZOMIB
     Indication: PLASMA CELL MYELOMA
     Dosage: UNK
     Route: 065
     Dates: start: 2003
  2. VELCADE [Suspect]
     Active Substance: BORTEZOMIB
     Dosage: 2.5 MG, 1/WEEK
     Route: 058
     Dates: start: 20170216, end: 2017

REACTIONS (7)
  - Staphylococcal infection [Unknown]
  - Diarrhoea [Unknown]
  - Neoplasm [Unknown]
  - Neuropathy peripheral [Unknown]
  - Paralysis [Unknown]
  - Vomiting [Unknown]
  - Pneumonia [Unknown]
